FAERS Safety Report 13989602 (Version 1)
Quarter: 2017Q3

REPORT INFORMATION
  Report Type: Spontaneous
  Country: US (occurrence: US)
  Receive Date: 20170920
  Receipt Date: 20170920
  Transmission Date: 20171128
  Serious: Yes (Other)
  Sender: FDA-Public Use
  Company Number: US-WEST-WARD PHARMACEUTICALS CORP.-US-H14001-17-03439

PATIENT
  Age: 23 Year
  Sex: Female

DRUGS (3)
  1. PROGESTERONE. [Suspect]
     Active Substance: PROGESTERONE
     Indication: LUTEAL PHASE DEFICIENCY
     Route: 030
  2. PROGESTERONE. [Suspect]
     Active Substance: PROGESTERONE
     Indication: LUTEAL PHASE DEFICIENCY
     Route: 067
  3. ESTROGEN [Suspect]
     Active Substance: ESTROGENS
     Indication: LUTEAL PHASE DEFICIENCY
     Route: 048

REACTIONS (1)
  - Eosinophilic pneumonia acute [Recovered/Resolved]
